FAERS Safety Report 7815314-2 (Version None)
Quarter: 2011Q4

REPORT INFORMATION
  Report Type: 
  Country: None (occurrence: None)
  Receive Date: 20111014
  Receipt Date: 20111005
  Transmission Date: 20120403
  Serious: Yes (Other)
  Sender: FDA-Public Use
  Company Number: US-ALLERGAN-1012953US

PATIENT
  Age: 28 Year
  Sex: Female

DRUGS (3)
  1. JUVEDERM [Concomitant]
     Dosage: UNK
     Dates: start: 20100916, end: 20100916
  2. BOTOX COSMETIC [Suspect]
     Dosage: 30 UNITS, SINGLE
     Route: 030
     Dates: start: 20100909, end: 20100909
  3. BOTOX COSMETIC [Suspect]
     Indication: SKIN WRINKLING
     Dosage: 5 UNITS, SINGLE
     Route: 030
     Dates: start: 20100922, end: 20100922

REACTIONS (1)
  - GRAND MAL CONVULSION [None]
